FAERS Safety Report 19496823 (Version 1)
Quarter: 2021Q3

REPORT INFORMATION
  Report Type: Spontaneous
  Country: US (occurrence: US)
  Receive Date: 20210702
  Receipt Date: 20210702
  Transmission Date: 20211014
  Serious: No
  Sender: FDA-Public Use
  Company Number: None

PATIENT
  Sex: Female

DRUGS (2)
  1. ENBREL [Suspect]
     Active Substance: ETANERCEPT
     Indication: SPINAL OSTEOARTHRITIS
     Route: 058
     Dates: start: 202104
  2. ENBREL [Suspect]
     Active Substance: ETANERCEPT
     Indication: RADICULOPATHY
     Route: 058
     Dates: start: 202104

REACTIONS (3)
  - Musculoskeletal stiffness [None]
  - Arthralgia [None]
  - Drug ineffective [None]
